FAERS Safety Report 6337016-4 (Version None)
Quarter: 2009Q3

REPORT INFORMATION
  Report Type: 
  Country: None (occurrence: None)
  Receive Date: 20090901
  Receipt Date: 20090821
  Transmission Date: 20100115
  Serious: Yes (Disabling, Other)
  Sender: FDA-Public Use
  Company Number: US-BAXTER-2009BH012636

PATIENT
  Age: 60 Year
  Sex: Female
  Weight: 56 kg

DRUGS (12)
  1. PHENERGAN [Suspect]
     Indication: NAUSEA
     Route: 042
     Dates: start: 20080321, end: 20080321
  2. PHENERGAN [Suspect]
     Indication: VOMITING
     Route: 042
     Dates: start: 20080321, end: 20080321
  3. MORPHINE SULFATE [Suspect]
     Indication: BACK PAIN
     Route: 042
     Dates: start: 20080321, end: 20080321
  4. MORPHINE SULFATE [Suspect]
     Route: 042
     Dates: start: 20080321, end: 20080321
  5. SODIUM CHLORIDE 0.9% IN PLASTIC CONTAINER [Suspect]
     Indication: DEHYDRATION
     Route: 040
     Dates: start: 20080321, end: 20080321
  6. ATIVAN [Suspect]
     Indication: ANXIETY
     Route: 042
     Dates: start: 20080819, end: 20080819
  7. DEXTROSE 5% AND SODIUM CHLORIDE 0.45% IN PLASTIC CONTAINER [Suspect]
     Indication: FLUID REPLACEMENT
     Route: 042
     Dates: start: 20080819, end: 20080820
  8. DIPHENHYDRAMINE HCL [Suspect]
     Indication: INJECTION SITE ERYTHEMA
     Route: 040
     Dates: start: 20080321, end: 20080321
  9. DARVOCET-N 100 [Suspect]
     Indication: PAIN
     Route: 048
     Dates: start: 20080325
  10. CARBAMAZEPINE [Concomitant]
     Indication: DRUG USE FOR UNKNOWN INDICATION
     Route: 048
  11. EFFEXOR [Concomitant]
     Indication: DRUG USE FOR UNKNOWN INDICATION
     Route: 048
  12. ENALAPRIL MALEATE [Concomitant]
     Indication: DRUG USE FOR UNKNOWN INDICATION
     Route: 048

REACTIONS (12)
  - CONFUSIONAL STATE [None]
  - DRY GANGRENE [None]
  - INJECTION SITE ERYTHEMA [None]
  - INJECTION SITE EXTRAVASATION [None]
  - NECROSIS [None]
  - NEUROPATHY PERIPHERAL [None]
  - PAIN IN EXTREMITY [None]
  - PARAESTHESIA [None]
  - PERIPHERAL COLDNESS [None]
  - POST PROCEDURAL HAEMORRHAGE [None]
  - THROMBOANGIITIS OBLITERANS [None]
  - VENOUS THROMBOSIS LIMB [None]
